FAERS Safety Report 7022256-1 (Version None)
Quarter: 2010Q3

REPORT INFORMATION
  Report Type: 
  Country: None (occurrence: None)
  Receive Date: 20100930
  Receipt Date: 20100921
  Transmission Date: 20110219
  Serious: Yes (Disabling)
  Sender: FDA-Public Use
  Company Number: CA-ASTRAZENECA-2010SE43467

PATIENT
  Age: 56 Year
  Sex: Male
  Weight: 90.7 kg

DRUGS (3)
  1. CRESTOR [Suspect]
     Indication: TOTAL CHOLESTEROL/HDL RATIO INCREASED
     Route: 048
     Dates: start: 20020901
  2. CRESTOR [Suspect]
     Route: 048
     Dates: start: 20100501
  3. MICARDIS [Concomitant]
     Indication: HYPERTENSION
     Route: 048
     Dates: start: 20100501

REACTIONS (1)
  - CATARACT [None]
